FAERS Safety Report 23416191 (Version 1)
Quarter: 2024Q1

REPORT INFORMATION
  Report Type: Report from Study
  Country: US (occurrence: US)
  Receive Date: 20240118
  Receipt Date: 20240118
  Transmission Date: 20240409
  Serious: Yes (Other)
  Sender: FDA-Public Use
  Company Number: US-MYLANLABS-2024M1004976

PATIENT
  Age: 71 Year
  Sex: Male

DRUGS (1)
  1. BORTEZOMIB [Suspect]
     Active Substance: BORTEZOMIB
     Indication: Warm autoimmune haemolytic anaemia
     Dosage: 1.3 MILLIGRAM/SQ. METER, QW
     Route: 058

REACTIONS (3)
  - Atrial fibrillation [Unknown]
  - Pyrexia [Unknown]
  - Off label use [Unknown]
